FAERS Safety Report 7637204-0 (Version None)
Quarter: 2011Q3

REPORT INFORMATION
  Report Type: 
  Country: None (occurrence: None)
  Receive Date: 20110726
  Receipt Date: 20110712
  Transmission Date: 20111222
  Serious: Yes (Hospitalization, Other)
  Sender: FDA-Public Use
  Company Number: PHHY2011FR61759

PATIENT
  Age: 45 Year
  Sex: Male

DRUGS (1)
  1. LAMISIL [Suspect]
     Dates: start: 20101001, end: 20110602

REACTIONS (4)
  - HEPATITIS CHOLESTATIC [None]
  - BILIARY DILATATION [None]
  - CHOLELITHIASIS [None]
  - JAUNDICE [None]
